FAERS Safety Report 6569923-1 (Version None)
Quarter: 2010Q1

REPORT INFORMATION
  Report Type: 
  Country: None (occurrence: None)
  Receive Date: 20100202
  Receipt Date: 20100202
  Transmission Date: 20100710
  Serious: Yes (Hospitalization, Other)
  Sender: FDA-Public Use
  Company Number: None

PATIENT
  Sex: Male
  Weight: 46.9 kg

DRUGS (1)
  1. DEPAKOTE [Suspect]
     Indication: EPILEPSY
     Dosage: 500 MG TID PO
     Route: 048
     Dates: start: 20081028, end: 20091116

REACTIONS (4)
  - CONTUSION [None]
  - EPISTAXIS [None]
  - HAEMATOCHEZIA [None]
  - THROMBOCYTOPENIA [None]
